FAERS Safety Report 9074741 (Version 1)
Quarter: 2013Q1

REPORT INFORMATION
  Report Type: Report from Study
  Country: US (occurrence: US)
  Receive Date: 20130129
  Receipt Date: 20130129
  Transmission Date: 20140127
  Serious: No
  Sender: FDA-Public Use
  Company Number: US-ABBOTT-12P-163-0934521-00

PATIENT
  Age: 57 Year
  Sex: Female

DRUGS (6)
  1. HUMIRA 40 MG/0.8 ML PEN [Suspect]
     Indication: PSORIASIS
     Dates: start: 201104, end: 201112
  2. HUMIRA 40 MG/0.8 ML PEN [Suspect]
     Dates: start: 201204
  3. XANAX [Concomitant]
     Indication: ANXIETY
  4. DESONIDE [Concomitant]
     Indication: PSORIASIS
     Dosage: DAILY
     Route: 061
  5. MOMETASONE [Concomitant]
     Indication: PSORIASIS
     Dosage: DAILY
     Route: 061
  6. FLUOCINONIDE [Concomitant]
     Indication: PSORIASIS
     Dosage: DAILY
     Route: 061

REACTIONS (1)
  - Hepatic enzyme increased [Recovered/Resolved]
